FAERS Safety Report 8869159 (Version 1)
Quarter: 2012Q4

REPORT INFORMATION
  Report Type: 
  Country: US (occurrence: US)
  Receive Date: 20121023
  Receipt Date: 20121023
  Transmission Date: 20130627
  Serious: No
  Sender: FDA-Public Use
  Company Number: US-AMGEN-USASP2012054239

PATIENT
  Age: 54 Year
  Sex: Male

DRUGS (2)
  1. ENBREL [Suspect]
     Indication: PRODUCT USED FOR UNKNOWN INDICATION
     Dosage: 25 mg, 2 times/wk
  2. IBUPROFEN                          /00109205/ [Concomitant]
     Dosage: 200 mg, UNK

REACTIONS (2)
  - Impaired healing [Recovering/Resolving]
  - Infection [Recovering/Resolving]
